FAERS Safety Report 4783097-9 (Version None)
Quarter: 2005Q3

REPORT INFORMATION
  Report Type: 
  Country: None (occurrence: None)
  Receive Date: 20050929
  Receipt Date: 20041214
  Transmission Date: 20060218
  Serious: Yes (Hospitalization)
  Sender: FDA-Public Use
  Company Number: 200419615US

PATIENT
  Sex: Male

DRUGS (5)
  1. ALLEGRA-D [Suspect]
     Route: 048
     Dates: start: 20040806, end: 20040809
  2. LEVAQUIN [Concomitant]
     Dosage: DOSE: 500MG
     Dates: start: 20040806
  3. DDAVP [Concomitant]
  4. CIPRO [Concomitant]
     Route: 047
     Dates: start: 20040806
  5. DOXAZOSIN [Concomitant]
     Dates: start: 20040810

REACTIONS (10)
  - ABDOMINAL PAIN LOWER [None]
  - BENIGN PROSTATIC HYPERPLASIA [None]
  - CONSTIPATION [None]
  - CYSTITIS [None]
  - GLUCOSE URINE PRESENT [None]
  - INSOMNIA [None]
  - POLLAKIURIA [None]
  - PROSTATIC DISORDER [None]
  - PROSTATITIS [None]
  - URINARY RETENTION [None]
